FAERS Safety Report 6385169-4 (Version None)
Quarter: 2009Q4

REPORT INFORMATION
  Report Type: 
  Country: None (occurrence: None)
  Receive Date: 20091002
  Receipt Date: 20090427
  Transmission Date: 20100525
  Serious: No
  Sender: FDA-Public Use
  Company Number: US-ASTRAZENECA-2003UW17258

PATIENT
  Age: 62 Year
  Sex: Female
  Weight: 65.3 kg

DRUGS (8)
  1. ARIMIDEX [Suspect]
     Indication: BREAST CANCER FEMALE
     Route: 048
     Dates: start: 20030701
  2. CELEBREX [Concomitant]
     Route: 048
  3. PEPCID [Concomitant]
     Route: 048
  4. VITAMIN E [Concomitant]
  5. CARDIZEM LA [Concomitant]
     Route: 048
  6. ACTONEL [Concomitant]
     Route: 048
  7. TOPROL-XL [Concomitant]
  8. VALIUM [Concomitant]

REACTIONS (9)
  - ABDOMINAL DISTENSION [None]
  - ANXIETY [None]
  - ARTHRALGIA [None]
  - CRYING [None]
  - DEPRESSION [None]
  - FATIGUE [None]
  - HEART RATE IRREGULAR [None]
  - WEIGHT DECREASED [None]
  - WEIGHT INCREASED [None]
